FAERS Safety Report 4704873-4 (Version None)
Quarter: 2005Q2

REPORT INFORMATION
  Report Type: 
  Country: None (occurrence: None)
  Receive Date: 20050630
  Receipt Date: 20050630
  Transmission Date: 20051028
  Serious: Yes (Hospitalization)
  Sender: FDA-Public Use
  Company Number: None

PATIENT
  Age: 56 Year
  Sex: Male
  Weight: 121 kg

DRUGS (15)
  1. SIMVASTATIN [Suspect]
     Indication: HYPERLIPIDAEMIA
     Dosage: 40 MG  QHS   ORAL
     Route: 048
     Dates: start: 20030619, end: 20040406
  2. FOSINOPRIL   20 MG [Suspect]
     Indication: HYPERTENSION
     Dosage: 20 MG  BID  ORAL
     Route: 048
     Dates: start: 20040311, end: 20040406
  3. GUAIFENESIN [Concomitant]
  4. ROSIGLITAZONE [Concomitant]
  5. INSULIN [Concomitant]
  6. HYDROCHLOROTHIAZIDE [Concomitant]
  7. SIMVASTATIN [Concomitant]
  8. DOCUSATE [Concomitant]
  9. FLUOXETINE [Concomitant]
  10. FOSINOPRIL [Concomitant]
  11. VITAMIN E [Concomitant]
  12. BACTRIM DS [Concomitant]
  13. NORMAL SALINE [Concomitant]
  14. BRIMONIDINE [Concomitant]
  15. TIMOLOL MALEATE [Concomitant]

REACTIONS (6)
  - ASTHENIA [None]
  - ELECTROCARDIOGRAM T WAVE PEAKED [None]
  - HYPERKALAEMIA [None]
  - HYPOAESTHESIA [None]
  - RENAL FAILURE ACUTE [None]
  - RHABDOMYOLYSIS [None]
